FAERS Safety Report 9716695 (Version 2)
Quarter: 2013Q4

REPORT INFORMATION
  Report Type: Spontaneous
  Country: US (occurrence: US)
  Receive Date: 20131127
  Receipt Date: 20131218
  Transmission Date: 20140711
  Serious: Yes (Other)
  Sender: FDA-Public Use
  Company Number: US-VERTEX PHARMACEUTICALS INC-2013-011429

PATIENT
  Age: 40 Year
  Sex: Female
  Weight: 65 kg

DRUGS (3)
  1. INCIVEK [Suspect]
     Indication: HEPATITIS C
     Dosage: 750 MG, TID
     Route: 048
     Dates: start: 20131119, end: 20131125
  2. COPEGUS [Suspect]
     Indication: HEPATITIS C
     Dosage: 400MG AM 600MG PM
     Dates: start: 20131119, end: 20131125
  3. PEGASYS [Suspect]
     Indication: HEPATITIS C
     Dosage: 180 ?G, QW
     Route: 058
     Dates: start: 20131119, end: 20131125

REACTIONS (3)
  - Rash generalised [Recovered/Resolved]
  - Pyrexia [Not Recovered/Not Resolved]
  - Urticaria [Unknown]
